FAERS Safety Report 8843439 (Version 1)
Quarter: 2012Q4

REPORT INFORMATION
  Report Type: 
  Country: US (occurrence: US)
  Receive Date: 20121016
  Receipt Date: 20121016
  Transmission Date: 20130627
  Serious: Yes (Hospitalization, Other)
  Sender: FDA-Public Use
  Company Number: US-ROCHE-1120144

PATIENT
  Sex: Female

DRUGS (3)
  1. NUTROPIN [Suspect]
     Indication: DWARFISM
     Route: 065
  2. NUTROPIN [Suspect]
     Indication: GROWTH HORMONE DEFICIENCY
  3. PREMARIN [Concomitant]

REACTIONS (5)
  - Rotator cuff repair [Unknown]
  - Compression fracture [Unknown]
  - Hypercalciuria [Unknown]
  - Pain in extremity [Unknown]
  - Osteomalacia [Unknown]
